FAERS Safety Report 25136865 (Version 1)
Quarter: 2025Q1

REPORT INFORMATION
  Report Type: Spontaneous
  Country: US (occurrence: US)
  Receive Date: 20250328
  Receipt Date: 20250328
  Transmission Date: 20250409
  Serious: Yes (Hospitalization, Other)
  Sender: NOVO NORDISK
  Company Number: US-NOVOPROD-1396905

PATIENT
  Sex: Female

DRUGS (1)
  1. WEGOVY [Suspect]
     Active Substance: SEMAGLUTIDE
     Indication: Weight control

REACTIONS (5)
  - Oesophageal rupture [Unknown]
  - Cyclic vomiting syndrome [Unknown]
  - Blood potassium decreased [Unknown]
  - Nausea [Unknown]
  - Eructation [Unknown]
